FAERS Safety Report 8550431-3 (Version None)
Quarter: 2012Q3

REPORT INFORMATION
  Report Type: 
  Country: None (occurrence: None)
  Receive Date: 20120718
  Receipt Date: 20120702
  Transmission Date: 20120928
  Serious: Yes (Disabling)
  Sender: FDA-Public Use
  Company Number: 2012MA008197

PATIENT
  Age: 47 Year
  Sex: Female

DRUGS (2)
  1. CARBAMAZEPINE [Suspect]
     Indication: TRIGEMINAL NEURALGIA
     Dosage: 600 MG; QD;
  2. ANALGESIC (NO PREF. NAME) [Suspect]
     Indication: TRIGEMINAL NEURALGIA

REACTIONS (7)
  - DRUG INEFFECTIVE [None]
  - FACIAL PAIN [None]
  - ACTIVITIES OF DAILY LIVING IMPAIRED [None]
  - DACRYOSTENOSIS ACQUIRED [None]
  - LACRIMAL DISORDER [None]
  - DIZZINESS [None]
  - PAIN [None]
